FAERS Safety Report 11231042 (Version 1)
Quarter: 2015Q2

REPORT INFORMATION
  Report Type: Spontaneous
  Country: DK (occurrence: None)
  Receive Date: 20150629
  Receipt Date: 20150629
  Transmission Date: 20150821
  Serious: Yes (Hospitalization)
  Sender: FDA-Public Use
  Company Number: DEP_03058_2015

PATIENT
  Age: 39 Year
  Sex: Female
  Weight: 70.04 kg

DRUGS (7)
  1. DICLON /00372302/ [Concomitant]
     Active Substance: DICLOFENAC SODIUM
  2. PANODIL [Concomitant]
     Active Substance: ACETAMINOPHEN
  3. PALEXIA [Suspect]
     Active Substance: TAPENTADOL HYDROCHLORIDE
     Indication: PAIN
     Dosage: 50 MG ORAL, 8 WEEKS 2 DAYS
     Route: 048
     Dates: start: 20131127
  4. PANTOLOC /01263204/ [Concomitant]
     Active Substance: PANTOPRAZOLE SODIUM
  5. BACLOFEN. [Concomitant]
     Active Substance: BACLOFEN
  6. EFFEXOR [Suspect]
     Active Substance: VENLAFAXINE HYDROCHLORIDE
     Indication: PAIN
     Route: 048
     Dates: start: 2007
  7. ELTROXIN [Concomitant]
     Active Substance: LEVOTHYROXINE

REACTIONS (5)
  - Depressive symptom [None]
  - Psychotic disorder [None]
  - Irritability [None]
  - Suicidal ideation [None]
  - Hallucination, visual [None]

NARRATIVE: CASE EVENT DATE: 20131215
